FAERS Safety Report 25513374 (Version 1)
Quarter: 2025Q3

REPORT INFORMATION
  Report Type: Spontaneous
  Country: US (occurrence: US)
  Receive Date: 20250703
  Receipt Date: 20250703
  Transmission Date: 20251021
  Serious: No
  Sender: SANOFI AVENTIS
  Company Number: US-SA-2025SA183008

PATIENT
  Age: 70 Year
  Sex: Female
  Weight: 79.55 kg

DRUGS (12)
  1. DUPIXENT [Suspect]
     Active Substance: DUPILUMAB
     Indication: Dermatitis atopic
     Dosage: 300 MG, QOW
     Route: 058
     Dates: start: 20250327
  2. CLOBETASOL [Concomitant]
     Active Substance: CLOBETASOL
     Dosage: BID
     Dates: start: 20250304
  3. DOXYCYCLINE HYCLATE [Concomitant]
     Active Substance: DOXYCYCLINE HYCLATE
     Dosage: BID
     Dates: start: 20250107
  4. DOXYCYCLINE [Concomitant]
     Active Substance: DOXYCYCLINE
     Dosage: 1DF,BID
     Dates: start: 20250304
  5. GABAPENTIN [Concomitant]
     Active Substance: GABAPENTIN
  6. KETOCONAZOLE [Concomitant]
     Active Substance: KETOCONAZOLE
     Dosage: BID
     Dates: start: 20241028
  7. MUPIROCIN [Concomitant]
     Active Substance: MUPIROCIN
     Dosage: QD
     Dates: start: 20250304
  8. PREDNISONE [Concomitant]
     Active Substance: PREDNISONE
     Dosage: 40MG FOR 4 DAYS
     Dates: start: 20250114
  9. PREDNISONE [Concomitant]
     Active Substance: PREDNISONE
  10. PREDNISONE [Concomitant]
     Active Substance: PREDNISONE
  11. PREDNISONE [Concomitant]
     Active Substance: PREDNISONE
  12. HYDROCHLOROTHIAZIDE\TRIAMTERENE [Concomitant]
     Active Substance: HYDROCHLOROTHIAZIDE\TRIAMTERENE

REACTIONS (5)
  - Rash erythematous [Unknown]
  - Skin exfoliation [Unknown]
  - Skin plaque [Unknown]
  - Pruritus [Unknown]
  - Rash [Unknown]

NARRATIVE: CASE EVENT DATE: 20250101
